FAERS Safety Report 7725410-6 (Version None)
Quarter: 2011Q3

REPORT INFORMATION
  Report Type: 
  Country: None (occurrence: None)
  Receive Date: 20110829
  Receipt Date: 20110812
  Transmission Date: 20111222
  Serious: Yes (Other)
  Sender: FDA-Public Use
  Company Number: NGX_00580_2011

PATIENT
  Sex: Male
  Weight: 81 kg

DRUGS (4)
  1. RAL [Concomitant]
  2. ALPHA LIPOIC ACID [Concomitant]
  3. KVX, DRV/RTV [Concomitant]
  4. QUTENZA [Suspect]
     Indication: NEUROPATHY PERIPHERAL
     Dosage: (DF [PATCH, APPLIED TO THE FOOT, ONCE] TOPICAL
     Route: 061
     Dates: start: 20110727, end: 20110727

REACTIONS (3)
  - ASTHMA [None]
  - APPLICATION SITE PAIN [None]
  - BURNING SENSATION [None]
